FAERS Safety Report 10235665 (Version 2)
Quarter: 2014Q2

REPORT INFORMATION
  Report Type: Report from Study
  Country: IT (occurrence: IT)
  Receive Date: 20140613
  Receipt Date: 20140613
  Transmission Date: 20141212
  Serious: Yes (Other)
  Sender: FDA-Public Use
  Company Number: PHHO2014IT006520

PATIENT
  Sex: 0

DRUGS (3)
  1. AMN107 [Suspect]
     Indication: CHRONIC MYELOID LEUKAEMIA
     Dosage: 300 MG, BID
     Route: 048
     Dates: start: 20140424, end: 20140428
  2. AMN107 [Suspect]
     Dosage: 150 MG, BID
     Route: 048
     Dates: start: 20140521
  3. LANSOPRAZOLE [Concomitant]
     Indication: PROPHYLAXIS
     Dosage: 300 MG, OD
     Route: 048
     Dates: start: 20130612

REACTIONS (1)
  - Cholecystitis [Recovered/Resolved]
